FAERS Safety Report 20003523 (Version 6)
Quarter: 2024Q1

REPORT INFORMATION
  Report Type: Report from Study
  Country: EG (occurrence: EG)
  Receive Date: 20211028
  Receipt Date: 20240227
  Transmission Date: 20240409
  Serious: Yes (Other)
  Sender: FDA-Public Use
  Company Number: EG-NOVARTISPH-NVSC2021EG242873

PATIENT
  Age: 42 Year
  Sex: Male

DRUGS (6)
  1. COSENTYX [Suspect]
     Active Substance: SECUKINUMAB
     Indication: Psoriatic arthropathy
     Dosage: 150 MG, QW, FOR 5 WEEKS
     Route: 058
     Dates: start: 202108, end: 2022
  2. COSENTYX [Suspect]
     Active Substance: SECUKINUMAB
     Indication: Skin lesion
     Dosage: 150 MG, QMO
     Route: 058
  3. COSENTYX [Suspect]
     Active Substance: SECUKINUMAB
     Dosage: 150 MG, EVERY 20 DAYS
     Route: 058
     Dates: start: 202109
  4. COSENTYX [Suspect]
     Active Substance: SECUKINUMAB
     Dosage: 300 MG, QW (TWO PREFILLED PEN EVERY WEEK FOR 2 WEEKS)
     Route: 058
  5. PERINDOPRIL [Concomitant]
     Active Substance: PERINDOPRIL
     Indication: Hypertension
     Dosage: 1 DOSAGE FORM, QD (STARTED 2 OR 3 YEARS AGO)
     Route: 065
  6. ANALLERGE [Concomitant]
     Indication: Psoriasis
     Dosage: 1 DOSAGE FORM (AFTER BREAKFAST)
     Route: 065
     Dates: start: 2021

REACTIONS (12)
  - Psoriatic arthropathy [Not Recovered/Not Resolved]
  - Pyrexia [Not Recovered/Not Resolved]
  - Inflammation [Not Recovered/Not Resolved]
  - Arthralgia [Not Recovered/Not Resolved]
  - Fatigue [Not Recovered/Not Resolved]
  - Skin exfoliation [Not Recovered/Not Resolved]
  - Hypersensitivity [Not Recovered/Not Resolved]
  - Erythema [Not Recovered/Not Resolved]
  - Inappropriate schedule of product administration [Not Recovered/Not Resolved]
  - Drug ineffective [Not Recovered/Not Resolved]
  - Off label use [Recovered/Resolved]
  - Product use in unapproved indication [Unknown]

NARRATIVE: CASE EVENT DATE: 20210801
